FAERS Safety Report 7237259-1 (Version None)
Quarter: 2011Q1

REPORT INFORMATION
  Report Type: 
  Country: None (occurrence: None)
  Receive Date: 20110121
  Receipt Date: 20110110
  Transmission Date: 20110831
  Serious: Yes (Other)
  Sender: FDA-Public Use
  Company Number: US-PFIZER INC-2011006543

PATIENT
  Age: 19 Year
  Sex: Male

DRUGS (1)
  1. TEMSIROLIMUS [Suspect]
     Dosage: 25 MG OVER 30 MINUTES WEEKLY
     Route: 042
     Dates: start: 20101018, end: 20101213

REACTIONS (1)
  - PERIORBITAL HAEMATOMA [None]
